FAERS Safety Report 7997141-9 (Version None)
Quarter: 2011Q4

REPORT INFORMATION
  Report Type: 
  Country: None (occurrence: None)
  Receive Date: 20111221
  Receipt Date: 20111216
  Transmission Date: 20120403
  Serious: Yes (Death, Hospitalization)
  Sender: FDA-Public Use
  Company Number: US-ASTELLAS-2011US007462

PATIENT
  Sex: Female

DRUGS (1)
  1. ERLOTINIB HYDROCHLORIDE [Suspect]
     Indication: LUNG CARCINOMA CELL TYPE UNSPECIFIED STAGE 0
     Dosage: 150 MG, UID/QD
     Route: 048
     Dates: start: 20111018

REACTIONS (2)
  - CLOSTRIDIAL INFECTION [None]
  - DISEASE PROGRESSION [None]
